FAERS Safety Report 6113060-7 (Version None)
Quarter: 2009Q1

REPORT INFORMATION
  Report Type: 
  Country: None (occurrence: None)
  Receive Date: 20090312
  Receipt Date: 20090312
  Transmission Date: 20090719
  Serious: Yes (Death, Hospitalization)
  Sender: FDA-Public Use
  Company Number: GB-ABBOTT-09P-167-0495713-00

PATIENT
  Sex: Male

DRUGS (7)
  1. HUMIRA [Suspect]
     Indication: CROHN'S DISEASE
     Route: 058
     Dates: start: 20080331
  2. HUMIRA [Suspect]
     Route: 058
     Dates: start: 20080601, end: 20081221
  3. ACETAMINOPHEN W/ CODEINE [Concomitant]
     Indication: PAIN
  4. PREGABALIN [Concomitant]
     Indication: DRUG USE FOR UNKNOWN INDICATION
  5. VITAMIN B-12 [Concomitant]
     Indication: DEFICIENCY ANAEMIA
     Route: 030
  6. ACTONEL [Concomitant]
     Indication: OSTEOPOROSIS
     Route: 048
  7. CACIT [Concomitant]
     Indication: OSTEOPOROSIS
     Route: 048

REACTIONS (3)
  - MULTI-ORGAN FAILURE [None]
  - PNEUMONIA STREPTOCOCCAL [None]
  - SEPSIS [None]
